FAERS Safety Report 6646023-3 (Version None)
Quarter: 2010Q1

REPORT INFORMATION
  Report Type: 
  Country: None (occurrence: None)
  Receive Date: 20100323
  Receipt Date: 20100310
  Transmission Date: 20100710
  Serious: Yes (Death, Life-Threatening)
  Sender: FDA-Public Use
  Company Number: DE-PFIZER INC-2010030742

PATIENT
  Age: 59 Year
  Sex: Male

DRUGS (38)
  1. LYRICA [Suspect]
     Indication: DEPRESSION
     Dosage: UNK DF, 3X/DAY
     Route: 048
     Dates: start: 20080128, end: 20080201
  2. FLUCONAZOLE [Suspect]
     Indication: ARTHRITIS
     Dosage: 400 MG, 1X/DAY
     Route: 042
     Dates: start: 20080114, end: 20080128
  3. HYDROCORTISONE SODIUM SUCCINATE [Suspect]
     Indication: SEPSIS
     Dosage: UNK
     Route: 042
     Dates: start: 20080129, end: 20080129
  4. CIPROFLOXACIN [Suspect]
     Indication: ARTHRITIS
     Dosage: 200 MG, 1X/DAY
     Route: 042
     Dates: start: 20080114
  5. CIPROFLOXACIN [Suspect]
     Dosage: 200 MG, 2X/DAY
     Route: 042
  6. LORAZEPAM [Suspect]
     Indication: RESTLESSNESS
     Dosage: 1.25 MG; 1 MG; UNK
     Route: 048
     Dates: start: 20080123, end: 20080124
  7. SODIUM CHLORIDE [Suspect]
     Indication: ELECTROLYTE SUBSTITUTION THERAPY
     Dosage: UNK
     Route: 042
     Dates: start: 20080109, end: 20080124
  8. SODIUM CHLORIDE [Suspect]
     Dosage: UNK
     Dates: start: 20080203
  9. POTASSIUM CHLORIDE [Suspect]
     Indication: ELECTROLYTE SUBSTITUTION THERAPY
     Dosage: UNK
     Route: 042
     Dates: start: 20080127, end: 20080128
  10. POTASSIUM CHLORIDE [Suspect]
     Dosage: UNK
     Dates: start: 20080130
  11. GLUCOSE [Suspect]
     Indication: ELECTROLYTE SUBSTITUTION THERAPY
     Dosage: UNK
     Route: 042
     Dates: start: 20080124, end: 20080129
  12. GLUCOSE [Suspect]
     Dosage: UNK
     Dates: start: 20080204
  13. HEPARIN [Suspect]
     Indication: THROMBOSIS PROPHYLAXIS
     Dosage: UNK
     Route: 042
     Dates: start: 20080117
  14. FURORESE [Suspect]
     Indication: POLYURIA
     Dosage: 250 MG, UNK
     Route: 042
     Dates: start: 20080117, end: 20080131
  15. DURAGESIC-100 [Suspect]
     Indication: PAIN
     Dosage: 50UG/H, 25UG/H, UNKNOWN
     Route: 062
     Dates: start: 20071202
  16. METOPROLOL SUCCINATE [Suspect]
     Indication: HYPERTENSION
     Dosage: UNK
     Route: 048
     Dates: start: 20080127
  17. METOPROLOL TARTRATE [Suspect]
     Indication: HYPERTENSION
     Dosage: 5 MG, UNK
     Route: 042
     Dates: start: 20080126, end: 20080127
  18. MIDAZOLAM HCL [Suspect]
     Indication: RESTLESSNESS
     Dosage: 3 X 2 MG ONCE DAILY
     Route: 042
     Dates: start: 20080130, end: 20080130
  19. MIDAZOLAM HCL [Suspect]
     Dosage: 2 X 1 MG ONCE DAILY
     Route: 042
     Dates: start: 20080201
  20. PIPERACILLIN AND TAZOBACTAM [Suspect]
     Indication: ARTHRITIS
     Dosage: 20 MG, 3X/DAY
     Route: 042
     Dates: start: 20071228
  21. PIPERACILLIN AND TAZOBACTAM [Suspect]
     Dosage: 4.5 G, 2X/DAY
     Route: 042
     Dates: end: 20080131
  22. CALCIUM CHLORIDE [Suspect]
     Indication: ELECTROLYTE SUBSTITUTION THERAPY
     Dosage: 10 MG, UNK
     Route: 042
     Dates: start: 20080127
  23. NEXIUM [Suspect]
     Indication: PROPHYLAXIS AGAINST GASTROINTESTINAL ULCER
     Dosage: 40 MG, 1X/DAY
     Route: 048
     Dates: start: 20080120
  24. AKRINOR [Suspect]
     Indication: HYPOTENSION
     Dosage: 3 ML, 2 ML, UNK
     Route: 042
     Dates: start: 20080123, end: 20080124
  25. PROPOFOL [Suspect]
     Indication: STUPOR
     Dosage: UNK
     Route: 042
     Dates: start: 20080123, end: 20080127
  26. ULTIVA [Suspect]
     Indication: STUPOR
     Dosage: 5 MG, UNK
     Route: 042
     Dates: start: 20080123, end: 20080127
  27. GELAFUNDIN ^BRAUN^ [Suspect]
     Indication: ELECTROLYTE SUBSTITUTION THERAPY
     Dosage: 4 %, UNK
     Route: 042
     Dates: start: 20080204
  28. JONOSTERIL [Suspect]
     Indication: ELECTROLYTE SUBSTITUTION THERAPY
     Dosage: UNK
     Route: 042
     Dates: start: 20080124, end: 20080131
  29. KETAMINE HCL [Suspect]
     Indication: STUPOR
     Dosage: 1500 MG, UNK
     Route: 042
     Dates: start: 20080124
  30. KETAMINE HCL [Suspect]
     Dosage: 50 MG, UNK
     Route: 042
     Dates: start: 20080128
  31. KETAMINE HCL [Suspect]
     Dosage: 40 MG, UNK
     Route: 042
     Dates: start: 20080130
  32. KETAMINE HCL [Suspect]
     Dosage: 30 MG, UNK
     Route: 042
     Dates: start: 20080201
  33. DULCOLAX [Suspect]
     Indication: CONSTIPATION
     Dosage: 10 MG, SINGLE
     Route: 054
     Dates: start: 20080127, end: 20080127
  34. INSULIN [Suspect]
     Indication: HYPERGLYCAEMIA
     Dosage: UNK
     Route: 042
     Dates: start: 20080128, end: 20080203
  35. LEVOTHYROXINE SODIUM [Suspect]
     Indication: HYPOTHYROIDISM
     Dosage: 125 UG, 150 UG, UNKNOWN
     Route: 048
     Dates: start: 20080129
  36. LEVOTHYROXINE SODIUM [Suspect]
     Dosage: UNK
     Route: 048
  37. DIPIDOLOR [Suspect]
     Indication: PAIN
     Dosage: 7.5 MG, 3.75 MG
     Route: 042
     Dates: start: 20080202
  38. NORMOFUNDIN [Suspect]
     Indication: ELECTROLYTE SUBSTITUTION THERAPY
     Dosage: UNK
     Dates: start: 20100202

REACTIONS (1)
  - STEVENS-JOHNSON SYNDROME [None]
